FAERS Safety Report 14806062 (Version 2)
Quarter: 2018Q2

REPORT INFORMATION
  Report Type: Spontaneous
  Country: GB (occurrence: GB)
  Receive Date: 20180425
  Receipt Date: 20180613
  Transmission Date: 20180711
  Serious: Yes (Death, Hospitalization)
  Sender: FDA-Public Use
  Company Number: GB-MYLANLABS-2018M1026271

PATIENT
  Sex: Male
  Weight: 71.8 kg

DRUGS (3)
  1. CLOZARIL [Suspect]
     Active Substance: CLOZAPINE
     Indication: SCHIZOPHRENIA
     Dosage: 25 MG, QD
     Route: 048
     Dates: start: 20151216, end: 20180412
  2. CLOZARIL [Suspect]
     Active Substance: CLOZAPINE
     Indication: DEMENTIA
  3. CLOZARIL [Suspect]
     Active Substance: CLOZAPINE
     Indication: PARKINSON^S DISEASE
     Dosage: UNK
     Route: 048
     Dates: start: 20180416, end: 20180420

REACTIONS (3)
  - Dysphagia [Recovering/Resolving]
  - Product use in unapproved indication [Recovered/Resolved]
  - Sepsis [Fatal]

NARRATIVE: CASE EVENT DATE: 20151216
